FAERS Safety Report 5090637-1 (Version None)
Quarter: 2006Q3

REPORT INFORMATION
  Report Type: 
  Country: None (occurrence: None)
  Receive Date: 20060823
  Receipt Date: 20060814
  Transmission Date: 20061208
  Serious: Yes (Other)
  Sender: FDA-Public Use
  Company Number: 14170

PATIENT
  Age: 72 Year
  Sex: Male
  Weight: 77.2 kg

DRUGS (9)
  1. AMIODARONE [Suspect]
     Indication: ARRHYTHMIA
     Dosage: 200 MG DAILY
     Dates: start: 20040710
  2. AMIODARONE [Suspect]
     Indication: CORONARY ARTERY BYPASS
     Dosage: 200 MG DAILY
     Dates: start: 20040710
  3. SIMVASTATIN [Suspect]
     Indication: DIABETES MELLITUS
     Dosage: 80 MG DAILY
     Dates: start: 20040813
  4. SIMVASTATIN [Suspect]
     Indication: HYPERLIPIDAEMIA
     Dosage: 80 MG DAILY
     Dates: start: 20040813
  5. METFORMIN HCL [Concomitant]
  6. ENALAPRIL [Concomitant]
  7. GLIMEPIRIDE [Concomitant]
  8. HYDROCHLOROTHIAZIDE [Concomitant]
  9. ASPIRIN [Concomitant]

REACTIONS (5)
  - AZOTAEMIA [None]
  - DRUG INTERACTION [None]
  - HEPATOTOXICITY [None]
  - RENAL FAILURE [None]
  - RHABDOMYOLYSIS [None]
